FAERS Safety Report 15505275 (Version 1)
Quarter: 2018Q4

REPORT INFORMATION
  Report Type: Spontaneous
  Country: FR (occurrence: FR)
  Receive Date: 20181016
  Receipt Date: 20181016
  Transmission Date: 20190205
  Serious: Yes (Other)
  Sender: FDA-Public Use
  Company Number: FR-TEVA-2018-FR-948658

PATIENT
  Sex: Female
  Weight: 68 kg

DRUGS (2)
  1. LEELOO [Suspect]
     Active Substance: ETHINYL ESTRADIOL\LEVONORGESTREL
     Indication: ORAL CONTRACEPTION
     Route: 065
  2. PROCUTA [Concomitant]
     Dosage: 40 MILLIGRAM DAILY;
     Dates: start: 20171222, end: 20180220

REACTIONS (4)
  - Drug ineffective [Unknown]
  - Abortion induced [Unknown]
  - Pregnancy on oral contraceptive [Unknown]
  - Foetal exposure timing unspecified [Unknown]
